FAERS Safety Report 8861288 (Version 1)
Quarter: 2012Q4

REPORT INFORMATION
  Report Type: Spontaneous
  Country: US (occurrence: None)
  Receive Date: 20121023
  Receipt Date: 20121023
  Transmission Date: 20130627
  Serious: Yes (Other)
  Sender: FDA-Public Use
  Company Number: EUS-2012-00835

PATIENT

DRUGS (4)
  1. ASPARAGINASE [Suspect]
     Indication: ACUTE LYMPHOCYTIC LEUKAEMIA
     Dosage: 6,000 u/m2 on days 17-28
  2. DAUNORUBICIN [Concomitant]
  3. VINCRISTINE (VINCRISTINE) (VINCRISTINE) [Concomitant]
  4. PREDNISONE (PREDNISONE) (PREDNISONE) [Concomitant]

REACTIONS (4)
  - Peripheral arterial occlusive disease [None]
  - Hypofibrinogenaemia [None]
  - Liver disorder [None]
  - Peripheral ischaemia [None]
